FAERS Safety Report 11020170 (Version 1)
Quarter: 2015Q2

REPORT INFORMATION
  Report Type: Spontaneous
  Country: CA (occurrence: CA)
  Receive Date: 20150413
  Receipt Date: 20150413
  Transmission Date: 20150821
  Serious: Yes (Hospitalization)
  Sender: FDA-Public Use
  Company Number: CA-IMPAX LABORATORIES, INC-2015-IPXL-00375

PATIENT
  Age: 12 Year
  Sex: Female
  Weight: 51 kg

DRUGS (1)
  1. BUPROPION HYDROCHLORIDE SR [Suspect]
     Active Substance: BUPROPION HYDROCHLORIDE
     Indication: SUICIDE ATTEMPT
     Dosage: 241 MG/KG (12.3 G), SINGLE
     Route: 048

REACTIONS (14)
  - Headache [Unknown]
  - Tachycardia [Unknown]
  - Mydriasis [Unknown]
  - Choreoathetosis [Recovered/Resolved]
  - Generalised tonic-clonic seizure [Unknown]
  - Blood pressure decreased [Unknown]
  - Myoclonus [Recovered/Resolved]
  - Intentional overdose [Unknown]
  - Blood creatine phosphokinase increased [Recovering/Resolving]
  - Somnolence [Unknown]
  - Electrocardiogram QT prolonged [Recovered/Resolved]
  - Abdominal pain [Unknown]
  - Confusional state [Unknown]
  - Nystagmus [Unknown]
